FAERS Safety Report 9233101 (Version 2)
Quarter: 2013Q2

REPORT INFORMATION
  Report Type: Spontaneous
  Country: NZ (occurrence: NZ)
  Receive Date: 20130416
  Receipt Date: 20130619
  Transmission Date: 20140414
  Serious: Yes (Hospitalization)
  Sender: FDA-Public Use
  Company Number: PHHY2013NZ035665

PATIENT
  Age: 89 Year
  Sex: Male
  Weight: 73 kg

DRUGS (3)
  1. ACLASTA [Suspect]
     Indication: OSTEOPOROSIS
     Dosage: 5 MG, UNK
     Route: 042
     Dates: start: 20120911
  2. OMEPRAZOLE [Concomitant]
     Dosage: 10 MG, DAILY
     Route: 048
  3. COLECALCIFEROL [Concomitant]
     Route: 048

REACTIONS (9)
  - Delirium [Recovered/Resolved]
  - Confusional state [Recovered/Resolved]
  - Tachycardia [Recovered/Resolved]
  - Pyrexia [Recovered/Resolved]
  - Nausea [Recovered/Resolved]
  - Pain [Recovered/Resolved]
  - General physical health deterioration [Unknown]
  - Cognitive disorder [Unknown]
  - Myalgia [Unknown]
